FAERS Safety Report 12548814 (Version 1)
Quarter: 2016Q3

REPORT INFORMATION
  Report Type: Spontaneous
  Country: US (occurrence: None)
  Receive Date: 20160711
  Receipt Date: 20160711
  Transmission Date: 20161109
  Serious: Yes (Death, Hospitalization)
  Sender: FDA-Public Use
  Company Number: None

PATIENT
  Age: 62 Year
  Sex: Female
  Weight: 46 kg

DRUGS (1)
  1. INTRON A [Suspect]
     Active Substance: INTERFERON ALFA-2B
     Dates: end: 20140131

REACTIONS (4)
  - Malignant melanoma [None]
  - Disease progression [None]
  - Lung cancer metastatic [None]
  - Brain cancer metastatic [None]

NARRATIVE: CASE EVENT DATE: 20160222
